FAERS Safety Report 21121167 (Version 1)
Quarter: 2022Q3

REPORT INFORMATION
  Report Type: Spontaneous
  Country: DE (occurrence: DE)
  Receive Date: 20220722
  Receipt Date: 20220722
  Transmission Date: 20221026
  Serious: Yes (Other)
  Sender: FDA-Public Use
  Company Number: DE-AMGEN-DEUSP2022119541

PATIENT
  Age: 15 Year
  Sex: Female

DRUGS (1)
  1. ADALIMUMAB [Suspect]
     Active Substance: ADALIMUMAB
     Indication: Uveitis
     Dosage: 40 MILLIGRAM, Q2WK
     Route: 058

REACTIONS (5)
  - Cataract [Unknown]
  - Ocular hypertension [Unknown]
  - Uveitis [Unknown]
  - Drug ineffective [Unknown]
  - Neutralising antibodies positive [Unknown]
